FAERS Safety Report 8869191 (Version 1)
Quarter: 2012Q4

REPORT INFORMATION
  Report Type: Spontaneous
  Country: JP (occurrence: None)
  Receive Date: 20121022
  Receipt Date: 20121022
  Transmission Date: 20130627
  Serious: Yes (Other)
  Sender: FDA-Public Use
  Company Number: DSA_60209_2012

PATIENT
  Age: 78 Year
  Sex: Male

DRUGS (1)
  1. FLUOROURACIL (FLUOROURACIL) [Suspect]
     Indication: OESOPHAGEAL CARCINOMA

REACTIONS (2)
  - Bacteraemia [None]
  - Febrile neutropenia [None]
